FAERS Safety Report 8677030 (Version 4)
Quarter: 2013Q1

REPORT INFORMATION
  Report Type: Spontaneous
  Country: US (occurrence: US)
  Receive Date: 20120723
  Receipt Date: 20130313
  Transmission Date: 20140127
  Serious: Yes (Hospitalization)
  Sender: FDA-Public Use
  Company Number: US-US-EMD SERONO, INC.-7147841

PATIENT
  Sex: Female
  Weight: 69 kg

DRUGS (3)
  1. REBIF [Suspect]
     Indication: MULTIPLE SCLEROSIS
     Route: 058
     Dates: start: 20050829
  2. PROZAC [Concomitant]
     Indication: DEPRESSION
     Dosage: FOR MANY YEARS (GRADES 9 THROUGH 12)
  3. PROZAC [Concomitant]
     Dosage: THREE WEEKS
     Dates: start: 20120201, end: 201202

REACTIONS (4)
  - Suicidal ideation [Unknown]
  - Depression [Not Recovered/Not Resolved]
  - Convulsion [Not Recovered/Not Resolved]
  - Injection site reaction [Unknown]
